FAERS Safety Report 5429596-8 (Version None)
Quarter: 2007Q3

REPORT INFORMATION
  Report Type: 
  Country: None (occurrence: None)
  Receive Date: 20070829
  Receipt Date: 20070817
  Transmission Date: 20080115
  Serious: Yes (Hospitalization)
  Sender: FDA-Public Use
  Company Number: GB-ROCHE-512283

PATIENT
  Age: 72 Year
  Sex: Male
  Weight: 127 kg

DRUGS (8)
  1. ORLISTAT [Suspect]
     Indication: OBESITY
     Route: 048
     Dates: start: 20070510
  2. CLOPIDOGREL [Concomitant]
     Indication: HYPERTENSION
     Route: 048
  3. BISOPROLOL [Concomitant]
     Indication: CARDIAC DISORDER
     Route: 048
  4. ACRIVASTIN [Concomitant]
     Route: 048
  5. ASPIRIN [Concomitant]
     Indication: THROMBOSIS PROPHYLAXIS
     Route: 048
  6. AMLODIPINE [Concomitant]
     Indication: CARDIAC DISORDER
     Route: 048
  7. RAMIPRIL [Concomitant]
     Indication: CARDIAC DISORDER
     Route: 048
  8. LANSOPRAZOLE [Concomitant]
     Indication: GASTROINTESTINAL DISORDER
     Route: 048

REACTIONS (1)
  - CEREBROVASCULAR ACCIDENT [None]
